FAERS Safety Report 9067812 (Version 1)
Quarter: 2013Q1

REPORT INFORMATION
  Report Type: Spontaneous
  Country: US (occurrence: US)
  Receive Date: 20130128
  Receipt Date: 20130128
  Transmission Date: 20140127
  Serious: Yes (Other)
  Sender: FDA-Public Use
  Company Number: US-ELI_LILLY_AND_COMPANY-US201301005845

PATIENT
  Age: 35 Year
  Sex: Female

DRUGS (3)
  1. CYMBALTA [Suspect]
     Dosage: 120 MG, UNKNOWN
  2. LIPITOR [Concomitant]
  3. TYLENOL                                 /SCH/ [Concomitant]
     Dosage: UNK, QID

REACTIONS (1)
  - Liver injury [Unknown]
